FAERS Safety Report 24304307 (Version 1)
Quarter: 2024Q3

REPORT INFORMATION
  Report Type: Spontaneous
  Country: ES (occurrence: ES)
  Receive Date: 20240910
  Receipt Date: 20240910
  Transmission Date: 20241016
  Serious: Yes (Hospitalization, Other)
  Sender: PFIZER
  Company Number: ES-ROCHE-10000006893

PATIENT
  Age: 66 Year
  Sex: Male

DRUGS (2)
  1. RITUXIMAB [Suspect]
     Active Substance: RITUXIMAB
     Dosage: FREQ:15 D;1 GR EACH 15 DAYS, FIRS CYCLE AND AFTER 1 GR EACH 6 MONTH
     Dates: start: 20131111, end: 20220722
  2. OCREVUS [Suspect]
     Active Substance: OCRELIZUMAB
     Dosage: FREQ:2 WK;300 MG EACH 15 DAYS, AND THEN 600 MG EACH 6 MONTHS.
     Dates: end: 20240306

REACTIONS (6)
  - Lymphopenia [Unknown]
  - Organising pneumonia [Unknown]
  - Interstitial lung disease [Unknown]
  - Respiratory failure [Unknown]
  - Febrile neutropenia [Unknown]
  - Off label use [Unknown]

NARRATIVE: CASE EVENT DATE: 20220801
